FAERS Safety Report 4978156-1 (Version None)
Quarter: 2006Q2

REPORT INFORMATION
  Report Type: 
  Country: None (occurrence: None)
  Receive Date: 20060414
  Receipt Date: 20060405
  Transmission Date: 20061013
  Serious: Yes (Hospitalization, Other)
  Sender: FDA-Public Use
  Company Number: 2005-03-1771

PATIENT
  Age: 32 Year
  Sex: Male

DRUGS (2)
  1. LOTRISONE [Suspect]
     Indication: TINEA CRURIS
     Dosage: TOP-DERM
     Route: 061
     Dates: start: 20050318
  2. ANTIFUNGAL TABLETS [Concomitant]

REACTIONS (2)
  - ANAPHYLACTIC REACTION [None]
  - INCORRECT ROUTE OF DRUG ADMINISTRATION [None]
